FAERS Safety Report 7521559-1 (Version None)
Quarter: 2011Q2

REPORT INFORMATION
  Report Type: 
  Country: None (occurrence: None)
  Receive Date: 20110603
  Receipt Date: 20110601
  Transmission Date: 20111010
  Serious: No
  Sender: FDA-Public Use
  Company Number: US-PFIZER INC-2011119104

PATIENT
  Sex: Female
  Weight: 58.957 kg

DRUGS (4)
  1. LIPITOR [Suspect]
     Indication: BLOOD CHOLESTEROL INCREASED
     Dosage: 20 MG, 1X/DAY
     Route: 048
     Dates: start: 20070101
  2. LIPITOR [Suspect]
     Dosage: 30 MG, UNK
     Route: 048
     Dates: start: 20110301
  3. ATENOLOL [Concomitant]
     Dosage: UNK
  4. TYLENOL-500 [Concomitant]
     Dosage: UNK

REACTIONS (1)
  - DYSPEPSIA [None]
